FAERS Safety Report 9029419 (Version 1)
Quarter: 2013Q1

REPORT INFORMATION
  Report Type: Spontaneous
  Country: JP (occurrence: JP)
  Receive Date: 20130125
  Receipt Date: 20130125
  Transmission Date: 20140127
  Serious: Yes (Hospitalization)
  Sender: FDA-Public Use
  Company Number: PHHY2013JP005701

PATIENT
  Age: 70 Year
  Sex: Female

DRUGS (8)
  1. IMATINIB [Suspect]
     Indication: CHRONIC MYELOID LEUKAEMIA
     Dosage: 400 MG, DAILY FOR 16 DAYS
  2. IMATINIB [Suspect]
     Dosage: 200 MG, DAILY FOR APPROX 2 MONTHS
  3. IMATINIB [Suspect]
     Dosage: 400 MG, PER DAY FOR APPROX 4 YEARS AND 2 MONTHS
  4. IMATINIB [Suspect]
     Dosage: 200 MG, PER DAY
  5. VALSARTAN [Concomitant]
     Dosage: UNK UKN, UNK
  6. FUROSEMIDE [Concomitant]
  7. METOPROLOL TARTRATE [Concomitant]
     Dosage: UNK UKN, UNK
  8. REBAMIPIDE [Concomitant]
     Dosage: UNK UKN, UNK

REACTIONS (6)
  - Pulmonary hypertension [Recovered/Resolved]
  - Oedema peripheral [Recovered/Resolved]
  - Weight increased [Recovering/Resolving]
  - Rash [Recovered/Resolved]
  - Gastrooesophageal reflux disease [Recovered/Resolved]
  - Right ventricular hypertrophy [Unknown]
